FAERS Safety Report 15524099 (Version 2)
Quarter: 2018Q4

REPORT INFORMATION
  Report Type: Spontaneous
  Country: FR (occurrence: FR)
  Receive Date: 20181019
  Receipt Date: 20181026
  Transmission Date: 20190205
  Serious: Yes (Hospitalization)
  Sender: FDA-Public Use
  Company Number: FR-JNJFOC-20181021266

PATIENT
  Sex: Male

DRUGS (4)
  1. TEMESTA [LORAZEPAM] [Concomitant]
     Active Substance: LORAZEPAM
     Route: 065
  2. ACIDE FOLIQUE [Concomitant]
     Active Substance: FOLIC ACID
     Route: 065
  3. XEPLION [Suspect]
     Active Substance: PALIPERIDONE PALMITATE
     Indication: PRODUCT USED FOR UNKNOWN INDICATION
     Dosage: EVERY 3 OR 4 WEEKS
     Route: 030
  4. LOXAPAC [Concomitant]
     Active Substance: LOXAPINE
     Route: 065

REACTIONS (5)
  - Product dose omission [Unknown]
  - Inappropriate schedule of product administration [Unknown]
  - Hypersomnia [Unknown]
  - Hospitalisation [Unknown]
  - Product administration error [Unknown]
